FAERS Safety Report 7243062-9 (Version None)
Quarter: 2011Q1

REPORT INFORMATION
  Report Type: 
  Country: None (occurrence: None)
  Receive Date: 20110125
  Receipt Date: 20101110
  Transmission Date: 20110831
  Serious: No
  Sender: FDA-Public Use
  Company Number: US-AMGEN-USASP2010004301

PATIENT
  Age: 71 Year
  Sex: Male

DRUGS (1)
  1. PROLIA [Suspect]
     Indication: OFF LABEL USE
     Dosage: 60 MG, UNK
     Dates: start: 20100922

REACTIONS (1)
  - PAIN IN EXTREMITY [None]
